FAERS Safety Report 8193416-1 (Version None)
Quarter: 2012Q1

REPORT INFORMATION
  Report Type: 
  Country: None (occurrence: None)
  Receive Date: 20120308
  Receipt Date: 20120305
  Transmission Date: 20120608
  Serious: Yes (Death, Life-Threatening)
  Sender: FDA-Public Use
  Company Number: FR-ABBOTT-12P-056-0911382-00

PATIENT
  Age: 80 Year
  Sex: Female

DRUGS (14)
  1. NEO-MERCAZOLE TAB [Suspect]
     Indication: HYPERTHYROIDISM
     Route: 065
     Dates: start: 20110316, end: 20110328
  2. LEVOFLOXACIN [Suspect]
     Indication: PRODUCT USED FOR UNKNOWN INDICATION
     Route: 065
     Dates: start: 20110415, end: 20110415
  3. LASIX [Concomitant]
     Indication: PRODUCT USED FOR UNKNOWN INDICATION
  4. AMLODIPINE BESYLATE [Concomitant]
     Indication: PRODUCT USED FOR UNKNOWN INDICATION
  5. NEO-MERCAZOLE TAB [Suspect]
     Route: 065
     Dates: start: 20110329, end: 20110426
  6. PREVISCAN [Concomitant]
     Indication: PRODUCT USED FOR UNKNOWN INDICATION
     Dates: start: 20110329
  7. ATORVASTATIN [Concomitant]
     Indication: PRODUCT USED FOR UNKNOWN INDICATION
     Dates: start: 20110330
  8. AUGMENTIN '125' [Suspect]
     Indication: PRODUCT USED FOR UNKNOWN INDICATION
     Route: 065
     Dates: start: 20110328, end: 20110408
  9. LEVOFLOXACIN [Suspect]
     Route: 065
     Dates: start: 20110416, end: 20110426
  10. MULTAQ [Suspect]
     Indication: PRODUCT USED FOR UNKNOWN INDICATION
     Route: 065
     Dates: start: 20110317, end: 20110426
  11. FLUTICASONE PROPIONATE/SALMETEROL [Concomitant]
     Indication: PRODUCT USED FOR UNKNOWN INDICATION
     Dates: start: 20110414
  12. ERYTHROMYCIN [Suspect]
     Indication: PRODUCT USED FOR UNKNOWN INDICATION
     Route: 065
     Dates: start: 20110420, end: 20110426
  13. AUGMENTIN '125' [Suspect]
     Route: 065
     Dates: start: 20110414, end: 20110421
  14. PULMICORT [Concomitant]
     Indication: PRODUCT USED FOR UNKNOWN INDICATION

REACTIONS (1)
  - RENAL FAILURE ACUTE [None]
